FAERS Safety Report 16841667 (Version 2)
Quarter: 2019Q4

REPORT INFORMATION
  Report Type: Report from Study
  Country: JP (occurrence: JP)
  Receive Date: 20190923
  Receipt Date: 20191004
  Transmission Date: 20200122
  Serious: Yes (Other)
  Sender: FDA-Public Use
  Company Number: JP-BAUSCH-BL-2019-026314

PATIENT
  Age: 42 Year
  Sex: Male
  Weight: 50.5 kg

DRUGS (14)
  1. IRINOTECAN [Suspect]
     Active Substance: IRINOTECAN
     Indication: RECTAL CANCER
     Dosage: 1ST CYCLE
     Route: 065
     Dates: start: 20190620, end: 2019
  2. FLUOROURACIL. [Suspect]
     Active Substance: FLUOROURACIL
     Dosage: FOURTH CYCLES
     Route: 065
     Dates: start: 20190808, end: 20190808
  3. CALCIUM LEVOFOLINATE [Suspect]
     Active Substance: LEVOLEUCOVORIN CALCIUM
     Dosage: FOUR CYCLES, (DOSAGE UNKNOWN, 1 DOSE)
     Route: 065
     Dates: start: 20190808, end: 20190808
  4. FLUOROURACIL. [Suspect]
     Active Substance: FLUOROURACIL
     Indication: RECTAL CANCER
     Dosage: FIVE CYCLES; 1X
     Route: 065
     Dates: start: 20190822, end: 20190822
  5. ZALTRAP [Suspect]
     Active Substance: ZIV-AFLIBERCEPT
     Indication: RECTAL CANCER
     Dosage: 1ST CYCLE
     Route: 041
     Dates: start: 20190620, end: 2019
  6. ZALTRAP [Suspect]
     Active Substance: ZIV-AFLIBERCEPT
     Dosage: 1X; FOUR CYCLES (DOSAGE UNKNOWN, 1 DOSE)
     Route: 041
     Dates: start: 20190808, end: 20190808
  7. FLUOROURACIL. [Suspect]
     Active Substance: FLUOROURACIL
     Indication: RECTAL CANCER
     Dosage: 1ST CYCLE
     Route: 065
     Dates: start: 20190620, end: 2019
  8. CALCIUM LEVOFOLINATE [Suspect]
     Active Substance: LEVOLEUCOVORIN CALCIUM
     Indication: RECTAL CANCER
     Dosage: 1ST CYCLE 1X
     Route: 065
     Dates: start: 20190620, end: 2019
  9. IRINOTECAN [Suspect]
     Active Substance: IRINOTECAN
     Dosage: 5 CYCLES; 1X
     Route: 065
     Dates: start: 20190822, end: 20190822
  10. CRAVIT [Concomitant]
     Active Substance: LEVOFLOXACIN
     Indication: C-REACTIVE PROTEIN INCREASED
     Dates: start: 20190822, end: 2019
  11. FLUOROURACIL. [Suspect]
     Active Substance: FLUOROURACIL
     Dosage: FIVE CYCLES
     Route: 065
     Dates: start: 20190822, end: 20190824
  12. ZALTRAP [Suspect]
     Active Substance: ZIV-AFLIBERCEPT
     Dosage: FIFTH CYCLES; 1X
     Route: 041
     Dates: start: 20190822, end: 20190822
  13. CALCIUM LEVOFOLINATE [Suspect]
     Active Substance: LEVOLEUCOVORIN CALCIUM
     Dosage: FIFTH CYCLES. 1X
     Route: 065
     Dates: start: 20190822, end: 20190822
  14. IRINOTECAN [Suspect]
     Active Substance: IRINOTECAN
     Dosage: 4 CYCLES, (DOSAGE UNKNOWN, 1 DOSE); 1X
     Route: 065
     Dates: start: 20190808, end: 20190808

REACTIONS (3)
  - C-reactive protein increased [Recovering/Resolving]
  - Malaise [Recovered/Resolved]
  - Decreased appetite [Recovered/Resolved]

NARRATIVE: CASE EVENT DATE: 20190801
